FAERS Safety Report 8855230 (Version 1)
Quarter: 2012Q4

REPORT INFORMATION
  Report Type: 
  Country: US (occurrence: US)
  Receive Date: 20121023
  Receipt Date: 20121023
  Transmission Date: 20130627
  Serious: No
  Sender: FDA-Public Use
  Company Number: US-AMGEN-USASP2012060094

PATIENT
  Sex: Female
  Weight: 74.83 kg

DRUGS (2)
  1. ENBREL [Suspect]
     Indication: PRODUCT USED FOR UNKNOWN INDICATION
     Dosage: 50 mg, qwk
     Route: 058
     Dates: end: 201209
  2. TRIPLEX                            /00050502/ [Concomitant]
     Dosage: AD LIQ

REACTIONS (2)
  - Joint swelling [Unknown]
  - Nodule [Unknown]
